FAERS Safety Report 10460549 (Version 3)
Quarter: 2019Q3

REPORT INFORMATION
  Report Type: Spontaneous
  Country: CA (occurrence: CA)
  Receive Date: 20140918
  Receipt Date: 20190814
  Transmission Date: 20191004
  Serious: Yes (Death, Hospitalization, Disabling, Other)
  Sender: FDA-Public Use
  Company Number: CA-AUROBINDO-AUR-APL-2014-09863

PATIENT

DRUGS (10)
  1. DOCUSATE SODIUM. [Suspect]
     Active Substance: DOCUSATE SODIUM
     Indication: CONSTIPATION
     Dosage: 200 MILLIGRAM, DAILY
     Route: 065
  2. LACTULOSE. [Suspect]
     Active Substance: LACTULOSE
     Indication: CONSTIPATION
     Dosage: 30 MILLIGRAM, DAILY
     Route: 065
  3. FUROSEMIDE. [Suspect]
     Active Substance: FUROSEMIDE
     Indication: OEDEMA PERIPHERAL
     Dosage: 40 MILLIGRAM, DAILY
     Route: 065
  4. SODIUM PHOSPHATE [Suspect]
     Active Substance: SODIUM PHOSPHATE
     Dosage: 130 MILLIGRAM
     Route: 065
  5. DIMENHYDRINATE. [Suspect]
     Active Substance: DIMENHYDRINATE
     Indication: VOMITING
     Dosage: 50 MILLIGRAM, EVERY FOUR HOUR
     Route: 065
  6. SODIUM PHOSPHATE [Suspect]
     Active Substance: SODIUM PHOSPHATE
     Indication: PRODUCT USED FOR UNKNOWN INDICATION
     Dosage: 130 MILLIGRAM, AS REQUIRED
     Route: 054
  7. BISACODYL. [Suspect]
     Active Substance: BISACODYL
     Indication: CONSTIPATION
     Dosage: 10 MILLIGRAM, AS REQUIRED
     Route: 065
  8. MIRTAZAPINE TABLETS 30MG [Suspect]
     Active Substance: MIRTAZAPINE
     Indication: MAJOR DEPRESSION
     Dosage: 30 MILLIGRAM, DAILY
     Route: 065
  9. MORPHINE SULFATE. [Suspect]
     Active Substance: MORPHINE SULFATE
     Indication: PAIN
     Dosage: 30 MILLIGRAM, EVERY FOUR HOUR, ONE EVRY FOUR HOUR
     Route: 065
  10. MIRTAZAPINE TABLETS 30MG [Suspect]
     Active Substance: MIRTAZAPINE
     Indication: DEPRESSION

REACTIONS (11)
  - Urinary retention [Fatal]
  - Mutism [Fatal]
  - Condition aggravated [Fatal]
  - Hypokinesia [Fatal]
  - Myocardial infarction [Fatal]
  - Constipation [Fatal]
  - Sudden death [Fatal]
  - Delirium [Fatal]
  - Somnolence [Fatal]
  - Intestinal pseudo-obstruction [Fatal]
  - Intestinal resection [Fatal]
